FAERS Safety Report 4491794-8 (Version None)
Quarter: 2004Q4

REPORT INFORMATION
  Report Type: 
  Country: None (occurrence: None)
  Receive Date: 20041101
  Receipt Date: 20041021
  Transmission Date: 20050328
  Serious: Yes (Other)
  Sender: FDA-Public Use
  Company Number: 2004-121503-NL

PATIENT
  Age: 45 Year
  Sex: Female
  Weight: 133.2 kg

DRUGS (1)
  1. NUVARING [Suspect]
     Indication: MENOPAUSAL SYMPTOMS
     Dosage: NI VAGINAL
     Route: 067
     Dates: start: 20041018, end: 20041020

REACTIONS (2)
  - DYSURIA [None]
  - MIGRATION OF IMPLANT [None]
